FAERS Safety Report 20035711 (Version 1)
Quarter: 2021Q4

REPORT INFORMATION
  Report Type: Spontaneous
  Country: None (occurrence: CA)
  Receive Date: 20211104
  Receipt Date: 20211104
  Transmission Date: 20220303
  Serious: Yes (Death)
  Sender: FDA-Public Use
  Company Number: CA-Canton Laboratories, LLC-2121500

PATIENT
  Age: 30 Year
  Sex: Male

DRUGS (9)
  1. NAPROSYN [Suspect]
     Active Substance: NAPROXEN
     Indication: Product used for unknown indication
  2. DIAZEPAM [Suspect]
     Active Substance: DIAZEPAM
  3. CLONAZEPAM [Suspect]
     Active Substance: CLONAZEPAM
     Route: 048
  4. PREGABALIN [Suspect]
     Active Substance: PREGABALIN
  5. METHYLPHENIDATE [Suspect]
     Active Substance: METHYLPHENIDATE
  6. NORTRIPTYLINE HYDROCHLORIDE [Suspect]
     Active Substance: NORTRIPTYLINE HYDROCHLORIDE
  7. OXAZEPAM [Suspect]
     Active Substance: OXAZEPAM
  8. TEMAZEPAM [Suspect]
     Active Substance: TEMAZEPAM
  9. OXYCODONE HYDROCHLORIDE [Concomitant]
     Active Substance: OXYCODONE HYDROCHLORIDE

REACTIONS (2)
  - Drug abuse [Fatal]
  - Poisoning [Fatal]
